FAERS Safety Report 10166799 (Version 1)
Quarter: 2014Q2

REPORT INFORMATION
  Report Type: Spontaneous
  Country: FR (occurrence: FR)
  Receive Date: 20140512
  Receipt Date: 20140512
  Transmission Date: 20141212
  Serious: Yes (Hospitalization)
  Sender: FDA-Public Use
  Company Number: FR-SA-2014SA059567

PATIENT
  Age: 49 Year
  Sex: Female

DRUGS (5)
  1. STILNOX [Suspect]
     Indication: PRODUCT USED FOR UNKNOWN INDICATION
     Dosage: 32 TABLETS INGESTED
     Route: 048
     Dates: end: 20140412
  2. DEPAKOTE [Suspect]
     Indication: PRODUCT USED FOR UNKNOWN INDICATION
     Dosage: 10 TABLETS
     Route: 048
     Dates: end: 20140412
  3. LEXOMIL [Suspect]
     Indication: PRODUCT USED FOR UNKNOWN INDICATION
     Dosage: 0.75 DAILY
     Route: 048
  4. LEVOTHYROX [Concomitant]
     Route: 065
  5. IMOVANE [Concomitant]
     Route: 065

REACTIONS (5)
  - Bradycardia [Recovered/Resolved]
  - Hypotension [Recovered/Resolved]
  - Somnolence [Recovered/Resolved]
  - Confusional state [Recovered/Resolved]
  - Overdose [Unknown]
